FAERS Safety Report 11433030 (Version 1)
Quarter: 2015Q3

REPORT INFORMATION
  Report Type: Spontaneous
  Country: US (occurrence: None)
  Receive Date: 20150828
  Receipt Date: 20150828
  Transmission Date: 20151125
  Serious: Yes (Death, Hospitalization)
  Sender: FDA-Public Use
  Company Number: None

PATIENT
  Age: 64 Year
  Sex: Male
  Weight: 56.9 kg

DRUGS (1)
  1. 5-FLUOROURACIL (5-FU) [Suspect]
     Active Substance: FLUOROURACIL
     Dates: end: 20150807

REACTIONS (5)
  - Unevaluable event [None]
  - Pneumothorax [None]
  - Respiratory arrest [None]
  - Septic shock [None]
  - Cardiac arrest [None]

NARRATIVE: CASE EVENT DATE: 20150817
